FAERS Safety Report 19043319 (Version 1)
Quarter: 2021Q1

REPORT INFORMATION
  Report Type: Spontaneous
  Country: US (occurrence: US)
  Receive Date: 20210322
  Receipt Date: 20210322
  Transmission Date: 20210420
  Serious: No
  Sender: FDA-Public Use
  Company Number: None

PATIENT
  Age: 63 Year
  Sex: Female

DRUGS (11)
  1. TIZANIDINE. [Concomitant]
     Active Substance: TIZANIDINE
     Dates: start: 20210311
  2. CELECOXIB. [Concomitant]
     Active Substance: CELECOXIB
     Dates: start: 20200406
  3. BUSPIRONE [Concomitant]
     Active Substance: BUSPIRONE HYDROCHLORIDE
     Dates: start: 20201207
  4. SERTRALINE [Concomitant]
     Active Substance: SERTRALINE HYDROCHLORIDE
     Dates: start: 20210226
  5. OXYBUTYNIN. [Concomitant]
     Active Substance: OXYBUTYNIN CHLORIDE
     Dates: start: 20210312
  6. OMEPRAZOLE. [Concomitant]
     Active Substance: OMEPRAZOLE
     Dates: start: 20201113
  7. LIDOCAINE PAD 5% [Concomitant]
     Dates: start: 20210114
  8. MAYZENT [Suspect]
     Active Substance: SIPONIMOD
     Indication: MULTIPLE SCLEROSIS
     Route: 048
     Dates: start: 20201222
  9. ATORVASTATIN [Concomitant]
     Active Substance: ATORVASTATIN
     Dates: start: 20210311
  10. ASPIRIN. [Concomitant]
     Active Substance: ASPIRIN
     Dates: start: 20210205
  11. MELOXICAM. [Concomitant]
     Active Substance: MELOXICAM
     Dates: start: 20201207

REACTIONS (3)
  - Paraesthesia [None]
  - Oedema [None]
  - Blood sodium decreased [None]

NARRATIVE: CASE EVENT DATE: 20210322
